FAERS Safety Report 20665027 (Version 1)
Quarter: 2022Q2

REPORT INFORMATION
  Report Type: Spontaneous
  Country: US (occurrence: US)
  Receive Date: 20220401
  Receipt Date: 20220401
  Transmission Date: 20220721
  Serious: No
  Sender: FDA-Public Use
  Company Number: US-BRISTOL-MYERS SQUIBB COMPANY-BMS-2022-033144

PATIENT
  Age: 82 Year
  Sex: Female

DRUGS (12)
  1. ELIQUIS [Suspect]
     Active Substance: APIXABAN
     Dosage: 1 TAB, BID
     Route: 048
  2. GABAPENTIN [Suspect]
     Active Substance: GABAPENTIN
     Indication: Type 2 diabetes mellitus
     Dosage: 1 TAB, BID
     Route: 048
  3. GABAPENTIN [Suspect]
     Active Substance: GABAPENTIN
     Indication: Pain
     Route: 065
  4. GABAPENTIN [Suspect]
     Active Substance: GABAPENTIN
     Indication: Mitral valve disease
     Route: 065
  5. TYLENOL [Suspect]
     Active Substance: ACETAMINOPHEN
     Dosage: UNK
     Route: 065
  6. FLONASE [Suspect]
     Active Substance: FLUTICASONE PROPIONATE
     Dosage: 1 SPRAY, BID
     Route: 045
  7. LASIX [Suspect]
     Active Substance: FUROSEMIDE
     Indication: Joint swelling
     Dosage: 1 TAB, BID
     Route: 048
  8. IMDUR [Suspect]
     Active Substance: ISOSORBIDE MONONITRATE
     Indication: Mitral valve disease
     Dosage: 1 TAB, QD
     Route: 065
  9. COZAAR [Suspect]
     Active Substance: LOSARTAN POTASSIUM
     Indication: Type 2 diabetes mellitus
     Dosage: 0.5 TABLETS BY MOUTH DAILY
     Route: 048
  10. COZAAR [Suspect]
     Active Substance: LOSARTAN POTASSIUM
     Indication: Diabetic neuropathy
     Route: 065
  11. COZAAR [Suspect]
     Active Substance: LOSARTAN POTASSIUM
     Indication: Hypertension
     Route: 065
  12. NAMENDA [Suspect]
     Active Substance: MEMANTINE HYDROCHLORIDE
     Indication: Dementia Alzheimer^s type
     Dosage: 1 TAB, BID
     Route: 048

REACTIONS (1)
  - Drug hypersensitivity [Unknown]
